FAERS Safety Report 6076577-X (Version None)
Quarter: 2009Q2

REPORT INFORMATION
  Report Type: 
  Country: None (occurrence: None)
  Receive Date: 20090211
  Receipt Date: 20090204
  Transmission Date: 20091009
  Serious: Yes (Hospitalization)
  Sender: FDA-Public Use
  Company Number: 115565

PATIENT
  Age: 21 Year
  Sex: Female
  Weight: 64.4108 kg

DRUGS (1)
  1. TIOCONAZOLE [Suspect]
     Indication: FUNGAL INFECTION
     Dosage: 1 APPLICATION/ONCE/INTRAVAGINALLY
     Route: 067
     Dates: start: 20090131, end: 20090131

REACTIONS (3)
  - DRUG EXPOSURE DURING PREGNANCY [None]
  - DRUG INEFFECTIVE [None]
  - VAGINAL SWELLING [None]
